FAERS Safety Report 13841109 (Version 1)
Quarter: 2017Q3

REPORT INFORMATION
  Report Type: Spontaneous
  Country: FR (occurrence: FR)
  Receive Date: 20170807
  Receipt Date: 20170807
  Transmission Date: 20171127
  Serious: Yes (Other)
  Sender: FDA-Public Use
  Company Number: FR-PFIZER INC-2017333222

PATIENT
  Age: 18 Year
  Sex: Male

DRUGS (4)
  1. ZARONTIN [Suspect]
     Active Substance: ETHOSUXIMIDE
     Dosage: 15 ML, 2X/DAY
     Route: 048
     Dates: start: 20170620, end: 20170709
  2. ZARONTIN [Suspect]
     Active Substance: ETHOSUXIMIDE
     Dosage: 10 ML, 2X/DAY
     Route: 048
     Dates: start: 20170616, end: 20170620
  3. ZARONTIN [Suspect]
     Active Substance: ETHOSUXIMIDE
     Indication: MYOCLONIC EPILEPSY
     Dosage: 5 ML, 2X/DAY
     Route: 048
     Dates: start: 20170606, end: 20170616
  4. ZONEGRAN [Concomitant]
     Active Substance: ZONISAMIDE
     Indication: MYOCLONIC EPILEPSY
     Dosage: 150 MG, 2X/DAY
     Route: 048

REACTIONS (9)
  - Gingival erythema [Recovered/Resolved]
  - Nausea [Recovered/Resolved]
  - Abdominal pain [Recovered/Resolved]
  - Fatigue [Recovered/Resolved]
  - Vomiting [Recovered/Resolved]
  - Diarrhoea [Recovered/Resolved]
  - Gamma-glutamyltransferase increased [Recovered/Resolved]
  - Weight decreased [Recovered/Resolved]
  - Asthenia [Recovered/Resolved]

NARRATIVE: CASE EVENT DATE: 20170616
